FAERS Safety Report 17580296 (Version 1)
Quarter: 2020Q1

REPORT INFORMATION
  Report Type: Spontaneous
  Country: US (occurrence: US)
  Receive Date: 20200324
  Receipt Date: 20200324
  Transmission Date: 20200409
  Serious: Yes (Life-Threatening, Other)
  Sender: FDA-Public Use
  Company Number: None

PATIENT
  Age: 50 Year
  Sex: Male
  Weight: 84.15 kg

DRUGS (4)
  1. ALKA-SELTZER PLUS MAXIMUM STRENGTH DAY AND NIGHT COLD AND FLU POWERMAX GELS [Suspect]
     Active Substance: ACETAMINOPHEN\DEXTROMETHORPHAN HYDROBROMIDE\DOXYLAMINE SUCCINATE\PHENYLEPHRINE HYDROCHLORIDE
     Indication: INFLUENZA
     Route: 048
     Dates: start: 20200320, end: 20200321
  2. DULERA SPRAY [Concomitant]
  3. ALBUTEROL. [Concomitant]
     Active Substance: ALBUTEROL
  4. VITAMIN D, C AND E [Concomitant]

REACTIONS (6)
  - Foreign body in respiratory tract [None]
  - Hyperhidrosis [None]
  - Nervousness [None]
  - Product physical issue [None]
  - Choking [None]
  - Near death experience [None]

NARRATIVE: CASE EVENT DATE: 20200321
